FAERS Safety Report 8149036-8 (Version None)
Quarter: 2012Q1

REPORT INFORMATION
  Report Type: 
  Country: None (occurrence: None)
  Receive Date: 20120218
  Receipt Date: 20110816
  Transmission Date: 20120608
  Serious: No
  Sender: FDA-Public Use
  Company Number: US-ALLERGAN-1111055US

PATIENT
  Age: 41 Year
  Sex: Female

DRUGS (1)
  1. BOTOX COSMETIC [Suspect]
     Indication: SKIN WRINKLING
     Dosage: 60 UNITS, SINGLE
     Dates: start: 20110728, end: 20110728

REACTIONS (7)
  - FATIGUE [None]
  - PARAESTHESIA ORAL [None]
  - NAUSEA [None]
  - HYPOAESTHESIA [None]
  - SKIN BURNING SENSATION [None]
  - THROAT IRRITATION [None]
  - FEELING ABNORMAL [None]
